FAERS Safety Report 16912486 (Version 1)
Quarter: 2019Q4

REPORT INFORMATION
  Report Type: Spontaneous
  Country: FR (occurrence: FR)
  Receive Date: 20191014
  Receipt Date: 20191014
  Transmission Date: 20200122
  Serious: Yes (Other)
  Sender: FDA-Public Use
  Company Number: FR-TEVA-2019-FR-1120131

PATIENT
  Age: 71 Year
  Sex: Female
  Weight: 80 kg

DRUGS (2)
  1. CARBOPLATINE TEVA [Suspect]
     Active Substance: CARBOPLATIN
     Indication: ENDOMETRIAL ADENOCARCINOMA
     Dosage: 4 COURSES 580MG/ CYCLICAL/ 153 DAYS
     Route: 041
     Dates: start: 20190222, end: 20190725
  2. PACLITAXEL TEVA [Suspect]
     Active Substance: PACLITAXEL
     Indication: ENDOMETRIAL ADENOCARCINOMA
     Dosage: 5 COURSES, 270MG/M2/ CYCLICAL / 167 DAYS
     Route: 041
     Dates: start: 20190222, end: 20190808

REACTIONS (3)
  - Left ventricular dysfunction [Not Recovered/Not Resolved]
  - Coronary artery disease [Recovering/Resolving]
  - Ejection fraction decreased [Not Recovered/Not Resolved]

NARRATIVE: CASE EVENT DATE: 20190912
